FAERS Safety Report 5542457-9 (Version None)
Quarter: 2007Q4

REPORT INFORMATION
  Report Type: 
  Country: None (occurrence: None)
  Receive Date: 20071210
  Receipt Date: 20071128
  Transmission Date: 20080405
  Serious: Yes (Hospitalization)
  Sender: FDA-Public Use
  Company Number: DE-SANOFI-SYNTHELABO-A01200711448

PATIENT
  Sex: Male
  Weight: 68 kg

DRUGS (6)
  1. ISCOVER [Suspect]
     Indication: CORONARY ANGIOPLASTY
     Route: 048
     Dates: start: 20070601
  2. ISCOVER [Suspect]
     Indication: STENT PLACEMENT
     Route: 048
     Dates: start: 20070601
  3. ISCOVER [Suspect]
     Route: 048
  4. ISCOVER [Suspect]
     Route: 048
  5. ACETYLSALICYLIC ACID SRT [Concomitant]
     Indication: CORONARY ANGIOPLASTY
     Route: 065
     Dates: start: 20070601
  6. ACETYLSALICYLIC ACID SRT [Concomitant]
     Indication: STENT PLACEMENT
     Route: 065
     Dates: start: 20070601

REACTIONS (2)
  - DRUG INEFFECTIVE [None]
  - IN-STENT ARTERIAL RESTENOSIS [None]
